FAERS Safety Report 23173852 (Version 2)
Quarter: 2023Q4

REPORT INFORMATION
  Report Type: Spontaneous
  Country: AT (occurrence: AT)
  Receive Date: 20231111
  Receipt Date: 20231220
  Transmission Date: 20240109
  Serious: Yes (Death)
  Sender: FDA-Public Use
  Company Number: AT-002147023-NVSC2023AT240878

PATIENT
  Sex: Male

DRUGS (17)
  1. RYDAPT [Suspect]
     Active Substance: MIDOSTAURIN
     Indication: Mastocytosis
     Dosage: 25 MG
     Route: 065
     Dates: start: 20230124
  2. RYDAPT [Suspect]
     Active Substance: MIDOSTAURIN
     Dosage: 25 MG
     Route: 065
     Dates: start: 20230310
  3. RYDAPT [Suspect]
     Active Substance: MIDOSTAURIN
     Dosage: 25 MG
     Route: 065
     Dates: start: 20230321
  4. RYDAPT [Suspect]
     Active Substance: MIDOSTAURIN
     Dosage: 25 MG
     Route: 065
     Dates: start: 20230426
  5. RYDAPT [Suspect]
     Active Substance: MIDOSTAURIN
     Dosage: 25 MG
     Route: 065
     Dates: start: 20230517
  6. RYDAPT [Suspect]
     Active Substance: MIDOSTAURIN
     Dosage: 25 MG
     Route: 065
     Dates: start: 20230605
  7. RYDAPT [Suspect]
     Active Substance: MIDOSTAURIN
     Dosage: 25 MG
     Route: 065
     Dates: start: 20230615
  8. RYDAPT [Suspect]
     Active Substance: MIDOSTAURIN
     Dosage: 25 MG
     Route: 065
     Dates: start: 20230712
  9. RYDAPT [Suspect]
     Active Substance: MIDOSTAURIN
     Dosage: 25 MG
     Route: 065
     Dates: start: 20230819
  10. RYDAPT [Suspect]
     Active Substance: MIDOSTAURIN
     Dosage: 25 MG
     Route: 065
     Dates: start: 20230829
  11. RYDAPT [Suspect]
     Active Substance: MIDOSTAURIN
     Dosage: 25 MG
     Route: 065
     Dates: start: 20231017
  12. RYDAPT [Suspect]
     Active Substance: MIDOSTAURIN
     Dosage: 2 DOSAGE FORM, BID (2-0-2)
     Route: 065
  13. ARANESP [Concomitant]
     Active Substance: DARBEPOETIN ALFA
     Indication: Product used for unknown indication
     Dosage: UNK
     Route: 065
  14. NEUPRO [Concomitant]
     Active Substance: ROTIGOTINE
     Indication: Parkinson^s disease
     Dosage: UNK
     Route: 065
  15. BENSERAZIDE HYDROCHLORIDE\LEVODOPA [Concomitant]
     Active Substance: BENSERAZIDE HYDROCHLORIDE\LEVODOPA
     Indication: Parkinson^s disease
     Dosage: (100/25 UNIT NOT REPORTED)
     Route: 065
  16. DESLORATADINE [Concomitant]
     Active Substance: DESLORATADINE
     Indication: Product used for unknown indication
     Dosage: UNK
     Route: 065
  17. ESCITALOPRAM [Concomitant]
     Active Substance: ESCITALOPRAM OXALATE
     Indication: Product used for unknown indication
     Dosage: 10 MG
     Route: 065

REACTIONS (1)
  - Inflammation [Fatal]
